FAERS Safety Report 4892682-5 (Version None)
Quarter: 2006Q1

REPORT INFORMATION
  Report Type: 
  Country: None (occurrence: None)
  Receive Date: 20060125
  Receipt Date: 20060125
  Transmission Date: 20060701
  Serious: Yes (Other)
  Sender: FDA-Public Use
  Company Number: None

PATIENT
  Age: 47 Year
  Sex: Male
  Weight: 74.8435 kg

DRUGS (4)
  1. GEODON [Suspect]
     Indication: ANXIETY
     Dosage: SEE SECTION B # 5 DAILY ORAL
     Route: 048
     Dates: start: 20010701
  2. GEODON [Suspect]
     Indication: MAJOR DEPRESSION
     Dosage: SEE SECTION B # 5 DAILY ORAL
     Route: 048
     Dates: start: 20010701
  3. GEODON [Suspect]
     Indication: PARANOIA
     Dosage: SEE SECTION B # 5 DAILY ORAL
     Route: 048
     Dates: start: 20010701
  4. GEODON [Suspect]
     Indication: SUICIDAL IDEATION
     Dosage: SEE SECTION B # 5 DAILY ORAL
     Route: 048
     Dates: start: 20010701

REACTIONS (2)
  - HYPERSOMNIA [None]
  - ROAD TRAFFIC ACCIDENT [None]
